FAERS Safety Report 5641969-7 (Version None)
Quarter: 2008Q1

REPORT INFORMATION
  Report Type: 
  Country: None (occurrence: None)
  Receive Date: 20080225
  Receipt Date: 20080208
  Transmission Date: 20080703
  Serious: Yes (Other)
  Sender: FDA-Public Use
  Company Number: 2008US000338

PATIENT
  Age: 61 Year
  Sex: Male

DRUGS (5)
  1. AMBISOME [Suspect]
     Indication: BRONCHOPULMONARY ASPERGILLOSIS
     Dosage: 130 MG, UID/QD, IV NOS
     Route: 042
     Dates: start: 20070530, end: 20070612
  2. MICAFUNGIN(MICAFUNGIN) INJECTION [Suspect]
     Indication: DRUG USE FOR UNKNOWN INDICATION
     Dosage: 150 MG
     Dates: start: 20070616, end: 20070618
  3. RABEPRAZOLE SODIUM [Concomitant]
  4. MUCODYNE (CARBOCISTEINE) [Concomitant]
  5. MUCOSOLVAN (AMBROXOL HYDROCHLORIDE) [Concomitant]

REACTIONS (5)
  - ANAEMIA [None]
  - ECZEMA [None]
  - HYPOKALAEMIA [None]
  - PYREXIA [None]
  - WHITE BLOOD CELL COUNT DECREASED [None]
